FAERS Safety Report 18113081 (Version 1)
Quarter: 2020Q3

REPORT INFORMATION
  Report Type: Spontaneous
  Country: US (occurrence: US)
  Receive Date: 20200805
  Receipt Date: 20200805
  Transmission Date: 20201103
  Serious: Yes (Other)
  Sender: FDA-Public Use
  Company Number: US-PFIZER INC-2020128344

PATIENT
  Age: 50 Year
  Sex: Female

DRUGS (1)
  1. DICLOFENAC EPOLAMINE [Suspect]
     Active Substance: DICLOFENAC EPOLAMINE
     Indication: PLANTAR FASCIITIS
     Dosage: UNK

REACTIONS (5)
  - Poor quality product administered [Unknown]
  - Product adhesion issue [Unknown]
  - Product use in unapproved indication [Unknown]
  - Off label use [Unknown]
  - Craniocerebral injury [Unknown]
